FAERS Safety Report 8848224 (Version 3)
Quarter: 2013Q1

REPORT INFORMATION
  Report Type: Spontaneous
  Country: US (occurrence: US)
  Receive Date: 20121018
  Receipt Date: 20130307
  Transmission Date: 20140127
  Serious: Yes (Hospitalization, Other)
  Sender: FDA-Public Use
  Company Number: US-009507513-1210USA007566

PATIENT
  Age: 55 None
  Sex: Male
  Weight: 65.76 kg

DRUGS (10)
  1. VICTRELIS [Suspect]
     Indication: CHRONIC HEPATITIS C
     Dosage: UNK UNK, QD
     Dates: start: 201205
  2. VICTRELIS [Suspect]
     Dosage: 800 MG, TID
     Route: 048
     Dates: start: 20120713
  3. VICTRELIS [Suspect]
     Dosage: 800 MG, TID
     Route: 048
     Dates: start: 201209
  4. RIBAVIRIN (WARRICK) [Suspect]
     Dosage: 2 QAM AND 1 Q PM
     Route: 048
     Dates: start: 201204
  5. PEGASYS [Suspect]
     Dosage: 150 MICROGRAM, QW
     Route: 058
     Dates: start: 201204
  6. ALBUTEROL [Concomitant]
     Dosage: 1-2 PUFF, Q8H AS NEEDED
  7. NOVOLIN [Concomitant]
     Dosage: 40 IU, QAM  WITH MEALS AND 25 UNITS QPM WITH MEALS
  8. MULTIGEN [Concomitant]
     Dosage: 1 DF, QD
     Route: 048
  9. SPIRIVA [Concomitant]
     Dosage: 1 DF, QD
     Route: 055
  10. ROBITUSSIN AC (CODEINE PHOSPHATE (+) GUAIFENESIN) [Concomitant]
     Dosage: 1 DF, Q8H AS NEEDED

REACTIONS (13)
  - Adverse drug reaction [Recovering/Resolving]
  - Pancytopenia [Recovering/Resolving]
  - Neutropenia [Recovering/Resolving]
  - Anaemia [Recovering/Resolving]
  - Platelet count decreased [Unknown]
  - White blood cell count decreased [Unknown]
  - Visual impairment [Unknown]
  - Speech disorder [Unknown]
  - Dyspnoea [Unknown]
  - Cough [Unknown]
  - Wheezing [Unknown]
  - Rhonchi [Unknown]
  - Breath sounds [Unknown]
